FAERS Safety Report 17768119 (Version 1)
Quarter: 2020Q2

REPORT INFORMATION
  Report Type: Spontaneous
  Country: TW (occurrence: TW)
  Receive Date: 20200511
  Receipt Date: 20200511
  Transmission Date: 20200714
  Serious: Yes (Other)
  Sender: FDA-Public Use
  Company Number: TW-TOPROL ACQUISITION LLC-2020-TOP-000235

PATIENT
  Sex: Male

DRUGS (1)
  1. METOPROLOL SUCCINATE. [Suspect]
     Active Substance: METOPROLOL SUCCINATE
     Indication: PRODUCT USED FOR UNKNOWN INDICATION
     Dosage: 100 MG, QD
     Route: 048
     Dates: start: 2018

REACTIONS (5)
  - Dizziness [Unknown]
  - Peripheral nerve injury [Unknown]
  - Peripheral coldness [Unknown]
  - Optic nerve injury [Unknown]
  - Heart rate decreased [Unknown]
